FAERS Safety Report 6405897-1 (Version None)
Quarter: 2009Q4

REPORT INFORMATION
  Report Type: 
  Country: None (occurrence: None)
  Receive Date: 20091016
  Receipt Date: 20091016
  Transmission Date: 20100525
  Serious: Yes (Life-Threatening, Hospitalization)
  Sender: FDA-Public Use
  Company Number: None

PATIENT
  Age: 57 Year
  Sex: Male
  Weight: 34.4734 kg

DRUGS (1)
  1. HALDOL DECANOATE 100MG [Suspect]
     Indication: SCHIZOPHRENIA
     Dosage: 100MG MONTHLY IM
     Route: 030

REACTIONS (3)
  - NEUROLEPTIC MALIGNANT SYNDROME [None]
  - ROAD TRAFFIC ACCIDENT [None]
  - TRAUMATIC BRAIN INJURY [None]
